FAERS Safety Report 6131028-1 (Version None)
Quarter: 2009Q1

REPORT INFORMATION
  Report Type: 
  Country: None (occurrence: None)
  Receive Date: 20090325
  Receipt Date: 20090203
  Transmission Date: 20090719
  Serious: No
  Sender: FDA-Public Use
  Company Number: US-BAYER-200912773NA

PATIENT
  Age: 38 Year
  Sex: Female
  Weight: 45 kg

DRUGS (1)
  1. MIRENA [Suspect]
     Indication: CONTRACEPTION
     Dosage: CONTINUOUS
     Route: 015
     Dates: start: 20081001

REACTIONS (5)
  - ABDOMINAL DISTENSION [None]
  - BACK PAIN [None]
  - CHLOASMA [None]
  - GENITAL HAEMORRHAGE [None]
  - NAUSEA [None]
